FAERS Safety Report 6863603-0 (Version None)
Quarter: 2010Q3

REPORT INFORMATION
  Report Type: 
  Country: None (occurrence: None)
  Receive Date: 20100721
  Receipt Date: 20080304
  Transmission Date: 20110219
  Serious: No
  Sender: FDA-Public Use
  Company Number: US-PFIZER INC-2008021862

PATIENT
  Sex: Male
  Weight: 101.8 kg

DRUGS (8)
  1. CHANTIX [Suspect]
     Indication: SMOKING CESSATION THERAPY
     Route: 048
  2. OXYCONTIN [Concomitant]
  3. VALIUM [Concomitant]
  4. NEURONTIN [Concomitant]
  5. NAPROXEN [Concomitant]
  6. ANTIHYPERTENSIVES [Concomitant]
     Indication: HYPERTENSION
  7. CHOLESTEROL- AND TRIGLYCERIDE REDUCERS [Concomitant]
     Indication: BLOOD CHOLESTEROL INCREASED
  8. ANTACID TAB [Concomitant]
     Indication: GASTROOESOPHAGEAL REFLUX DISEASE

REACTIONS (2)
  - DIARRHOEA [None]
  - VOMITING [None]
